FAERS Safety Report 9089693 (Version 2)
Quarter: 2013Q1

REPORT INFORMATION
  Report Type: Spontaneous
  Country: US (occurrence: US)
  Receive Date: 20130131
  Receipt Date: 20130220
  Transmission Date: 20140127
  Serious: Yes (Hospitalization, Other)
  Sender: FDA-Public Use
  Company Number: CHPA2013US001827

PATIENT
  Age: 70 Year
  Sex: Female

DRUGS (7)
  1. PREVACID 24HR 15MG [Suspect]
     Indication: FLATULENCE
     Dosage: 15 MG, 2 OR 3 TIMES A WEEK
     Route: 048
  2. PREVACID 24HR 15MG [Suspect]
     Dosage: 15 MG, 2 OR 3 TIMES A WEEK
     Route: 048
     Dates: start: 2011
  3. BENICAR [Suspect]
     Indication: CONVULSION
  4. CLONIDINE [Concomitant]
     Indication: HYPERTENSION
     Dosage: 0.1 MG, TID
     Route: 048
  5. AMLODIPINE BESYLATE [Concomitant]
     Indication: HYPERTENSION
     Dosage: SMALL PIECE OF 10MG, QD
  6. BENADRYL CHILDRENS [Concomitant]
     Dosage: 1-2 TEASPOONS, QD PRN
     Route: 048
  7. ENZYMES [Concomitant]
     Indication: LACTOSE INTOLERANCE
     Dosage: 1 DF, PRN

REACTIONS (11)
  - Convulsion [Recovered/Resolved]
  - Hypoaesthesia [Recovered/Resolved]
  - Hypertension [Recovered/Resolved]
  - Pulmonary mass [Unknown]
  - Chest discomfort [Recovered/Resolved]
  - Proctalgia [Unknown]
  - Abdominal pain upper [Unknown]
  - Drug ineffective for unapproved indication [Unknown]
  - Therapeutic response unexpected [Unknown]
  - Treatment noncompliance [Unknown]
  - Incorrect drug administration duration [Unknown]
